FAERS Safety Report 8514079-9 (Version None)
Quarter: 2012Q3

REPORT INFORMATION
  Report Type: 
  Country: None (occurrence: None)
  Receive Date: 20120717
  Receipt Date: 20120702
  Transmission Date: 20120928
  Serious: No
  Sender: FDA-Public Use
  Company Number: US-009507513-1207USA000367

PATIENT

DRUGS (2)
  1. PROPECIA [Suspect]
     Indication: ANDROGENETIC ALOPECIA
     Dosage: 1 MG, QD
     Route: 048
     Dates: start: 20000701
  2. PROPECIA [Suspect]
     Dosage: 1 MG, QD
     Route: 048
     Dates: start: 20120101

REACTIONS (2)
  - ABDOMINAL PAIN UPPER [None]
  - ABDOMINAL PAIN [None]
